FAERS Safety Report 7520984-2 (Version None)
Quarter: 2011Q2

REPORT INFORMATION
  Report Type: 
  Country: None (occurrence: None)
  Receive Date: 20110603
  Receipt Date: 20100928
  Transmission Date: 20111010
  Serious: Yes (Hospitalization)
  Sender: FDA-Public Use
  Company Number: US-BAYER-201036835NA

PATIENT
  Age: 47 Year
  Sex: Female
  Weight: 61.678 kg

DRUGS (3)
  1. YASMIN [Suspect]
  2. YASMIN [Suspect]
     Indication: ACNE
  3. YAZ [Suspect]

REACTIONS (3)
  - ISCHAEMIC STROKE [None]
  - HEADACHE [None]
  - VOMITING [None]
